FAERS Safety Report 20650268 (Version 1)
Quarter: 2022Q1

REPORT INFORMATION
  Report Type: Spontaneous
  Country: US (occurrence: US)
  Receive Date: 20220329
  Receipt Date: 20220329
  Transmission Date: 20220423
  Serious: No
  Sender: FDA-Public Use
  Company Number: US-SA-SAC20220323000152

PATIENT
  Age: 17 Year
  Sex: Female

DRUGS (6)
  1. DUPIXENT [Suspect]
     Active Substance: DUPILUMAB
     Indication: Psoriasis
     Dosage: 300 MG, QOW
     Route: 058
     Dates: start: 20201205
  2. AKLIEF [Concomitant]
     Active Substance: TRIFAROTENE
     Dosage: UNK
  3. CLOBETASOL [Concomitant]
     Active Substance: CLOBETASOL
     Dosage: UNK
  4. ALUMINUM CHLORIDE [Concomitant]
     Active Substance: ALUMINUM CHLORIDE
     Dosage: UNK
  5. FLUTICASONE [Concomitant]
     Active Substance: FLUTICASONE
     Dosage: UNK
  6. TARSUM [Concomitant]
     Active Substance: COAL TAR\SALICYLIC ACID
     Dosage: UNK

REACTIONS (4)
  - Discomfort [Unknown]
  - COVID-19 [Unknown]
  - Rash [Unknown]
  - Product use in unapproved indication [Unknown]

NARRATIVE: CASE EVENT DATE: 20211229
